FAERS Safety Report 20927576 (Version 1)
Quarter: 2022Q2

REPORT INFORMATION
  Report Type: Spontaneous
  Country: None (occurrence: US)
  Receive Date: 20220607
  Receipt Date: 20220607
  Transmission Date: 20220721
  Serious: No
  Sender: FDA-Public Use
  Company Number: US-Nexgen Pharma, Inc.-2129563

PATIENT
  Age: 34 Year
  Sex: Male

DRUGS (1)
  1. CHENODAL [Suspect]
     Active Substance: CHENODIOL
     Indication: Lipidosis
     Route: 048
     Dates: start: 20190608

REACTIONS (6)
  - Diarrhoea [Unknown]
  - Blood sodium increased [Unknown]
  - Blood urea nitrogen/creatinine ratio increased [Unknown]
  - Dehydration [Unknown]
  - Blood urea increased [Unknown]
  - Blood chloride increased [Unknown]
